FAERS Safety Report 4603736-2 (Version None)
Quarter: 2005Q1

REPORT INFORMATION
  Report Type: 
  Country: None (occurrence: None)
  Receive Date: 20050308
  Receipt Date: 20050308
  Transmission Date: 20050727
  Serious: Yes (Hospitalization)
  Sender: FDA-Public Use
  Company Number: None

PATIENT
  Age: 76 Year
  Sex: Male
  Weight: 89.1 kg

DRUGS (2)
  1. BACLOFEN [Suspect]
     Dosage: 20 MG PO QID
     Route: 048
  2. LORAZEPAM [Suspect]
     Dosage: 1 MG Q AM 2 MG Q HS

REACTIONS (3)
  - LETHARGY [None]
  - MENTAL STATUS CHANGES [None]
  - TREATMENT NONCOMPLIANCE [None]
